FAERS Safety Report 5799961-8 (Version None)
Quarter: 2008Q2

REPORT INFORMATION
  Report Type: 
  Country: None (occurrence: None)
  Receive Date: 20080626
  Receipt Date: 20050705
  Transmission Date: 20081010
  Serious: Yes (Hospitalization)
  Sender: FDA-Public Use
  Company Number: 422584

PATIENT
  Age: 43 Year
  Sex: Female
  Weight: 90.7 kg

DRUGS (5)
  1. XELODA [Suspect]
     Indication: COLORECTAL CANCER
     Dates: start: 20020901
  2. IRINOTECAN HCL [Suspect]
     Indication: COLORECTAL CANCER
  3. FLUOROURACIL [Concomitant]
  4. LEUCOVORIN CALCIUM [Concomitant]
  5. ELOXATIN [Concomitant]

REACTIONS (9)
  - CHEST DISCOMFORT [None]
  - GAIT DISTURBANCE [None]
  - GENERALISED OEDEMA [None]
  - JAUNDICE [None]
  - OEDEMA PERIPHERAL [None]
  - PALMAR-PLANTAR ERYTHRODYSAESTHESIA SYNDROME [None]
  - PARAESTHESIA [None]
  - PLATELET COUNT DECREASED [None]
  - RHINORRHOEA [None]
